FAERS Safety Report 6179642-1 (Version None)
Quarter: 2009Q2

REPORT INFORMATION
  Report Type: 
  Country: None (occurrence: None)
  Receive Date: 20090505
  Receipt Date: 20090421
  Transmission Date: 20091009
  Serious: Yes (Life-Threatening)
  Sender: FDA-Public Use
  Company Number: JP-MERCK-0905USA00155

PATIENT
  Age: 73 Year
  Sex: Female

DRUGS (4)
  1. FOSAMAX [Suspect]
     Indication: OSTEOPOROSIS
     Route: 048
     Dates: start: 20090325, end: 20090420
  2. DIOVAN [Suspect]
     Route: 048
  3. LOCHOL [Concomitant]
     Route: 048
  4. PARULEON [Concomitant]
     Route: 048

REACTIONS (2)
  - DYSPNOEA [None]
  - TACHYCARDIA [None]
